FAERS Safety Report 8501873 (Version 3)
Quarter: 2013Q3

REPORT INFORMATION
  Report Type: Spontaneous
  Country: US (occurrence: None)
  Receive Date: 20120327
  Receipt Date: 20130724
  Transmission Date: 20140515
  Serious: Yes (Other)
  Sender: FDA-Public Use
  Company Number: PHHY2011US37016

PATIENT
  Age: 58 Year
  Sex: Female
  Weight: 90.2 kg

DRUGS (8)
  1. GLEEVEC [Suspect]
     Route: 048
  2. MOTRIN [Concomitant]
  3. BENADRYL [Concomitant]
  4. VICODIN [Concomitant]
  5. SYNTHROID [Concomitant]
  6. ADDERALL [Concomitant]
  7. BONINE (MECLOZINE HYDROCHLORIDE) [Concomitant]
  8. DRAMAMINE (DIMENHYDRINATE) [Concomitant]

REACTIONS (9)
  - Oedema [None]
  - White blood cell disorder [None]
  - Ear infection [None]
  - Pharyngitis [None]
  - Nausea [None]
  - Chills [None]
  - Oral mucosal blistering [None]
  - Eye swelling [None]
  - Drug ineffective [None]
